FAERS Safety Report 23694323 (Version 1)
Quarter: 2024Q2

REPORT INFORMATION
  Report Type: Spontaneous
  Country: DE (occurrence: DE)
  Receive Date: 20240401
  Receipt Date: 20240401
  Transmission Date: 20240716
  Serious: Yes (Other)
  Sender: FDA-Public Use
  Company Number: DE-BRISTOL-MYERS SQUIBB COMPANY-2024-043166

PATIENT
  Age: 71 Year
  Sex: Male
  Weight: 107 kg

DRUGS (25)
  1. CARBOPLATIN [Suspect]
     Active Substance: CARBOPLATIN
     Indication: Non-small cell lung cancer
     Dosage: 580 AUC - MG/MIN*ML
     Route: 042
     Dates: start: 20240227
  2. CARBOPLATIN [Suspect]
     Active Substance: CARBOPLATIN
     Dosage: 580 AUC - MG/MIN*ML
     Route: 042
     Dates: start: 20240116
  3. CARBOPLATIN [Suspect]
     Active Substance: CARBOPLATIN
     Dosage: 580 AUC - MG/MIN*ML
     Route: 042
     Dates: start: 20240206
  4. DEXAMETHASONE [Suspect]
     Active Substance: DEXAMETHASONE
     Dosage: 16.000MG QD
     Route: 042
     Dates: start: 20240116, end: 20240116
  5. DEXAMETHASONE [Suspect]
     Active Substance: DEXAMETHASONE
     Dosage: 16.000MG QD
     Route: 042
     Dates: start: 20240206, end: 20240206
  6. DEXAMETHASONE [Suspect]
     Active Substance: DEXAMETHASONE
     Dosage: 16.000MG QD
     Route: 042
     Dates: start: 20240227, end: 20240227
  7. DEXAMETHASONE [Suspect]
     Active Substance: DEXAMETHASONE
     Indication: Prophylaxis
     Dosage: 8.000MG QD
     Route: 048
     Dates: start: 20240207, end: 20240208
  8. DEXAMETHASONE [Suspect]
     Active Substance: DEXAMETHASONE
     Dosage: 8.000MG QD
     Route: 048
     Dates: start: 20240117, end: 20240118
  9. DEXAMETHASONE [Suspect]
     Active Substance: DEXAMETHASONE
     Dosage: 8.000MG QD
     Route: 048
     Dates: start: 20240228, end: 20240229
  10. NIVOLUMAB [Suspect]
     Active Substance: NIVOLUMAB
     Indication: Non-small cell lung cancer
     Dosage: 360.000MG
     Route: 042
     Dates: start: 20240116
  11. PACLITAXEL [Suspect]
     Active Substance: PACLITAXEL
     Indication: Non-small cell lung cancer
     Dosage: 400.000MG/M2
     Route: 042
     Dates: start: 20240227
  12. PACLITAXEL [Suspect]
     Active Substance: PACLITAXEL
     Dosage: 400.000MG/M2
     Route: 042
     Dates: start: 20240116
  13. PACLITAXEL [Suspect]
     Active Substance: PACLITAXEL
     Dosage: 400.000MG/M2
     Route: 042
     Dates: start: 20240206
  14. ALLOPURINOL [Concomitant]
     Active Substance: ALLOPURINOL
     Indication: Prophylaxis
     Dosage: 300.000MG
     Route: 048
     Dates: start: 20231001
  15. CANDESARTAN [Concomitant]
     Active Substance: CANDESARTAN
     Indication: Hypertension
     Dosage: 16.000MG QD
     Route: 048
     Dates: start: 20090101
  16. DIMETHINDENE [Concomitant]
     Active Substance: DIMETHINDENE
     Indication: Prophylaxis
     Dosage: DOSE: 1 AMP
     Route: 042
     Dates: start: 20240116, end: 20240116
  17. DIMETHINDENE [Concomitant]
     Active Substance: DIMETHINDENE
     Dosage: DOSE: 1 AMP
     Route: 042
     Dates: start: 20240206, end: 20240206
  18. DIMETHINDENE [Concomitant]
     Active Substance: DIMETHINDENE
     Dosage: DOSE: 1 AMP
     Route: 042
     Dates: start: 20240227, end: 20240227
  19. METOCLOPRAMIDE [Concomitant]
     Active Substance: METOCLOPRAMIDE
     Indication: Prophylaxis
     Dosage: 10.000MG
     Route: 048
     Dates: start: 20240206, end: 20240214
  20. METOCLOPRAMIDE [Concomitant]
     Active Substance: METOCLOPRAMIDE
     Dosage: 10.000MG
     Route: 048
     Dates: start: 20240227, end: 20240305
  21. NETUPITANT\PALONOSETRON [Concomitant]
     Active Substance: NETUPITANT\PALONOSETRON
     Indication: Prophylaxis
     Dosage: 300.000MG QD
     Route: 048
     Dates: start: 20240227, end: 20240227
  22. NETUPITANT\PALONOSETRON [Concomitant]
     Active Substance: NETUPITANT\PALONOSETRON
     Dosage: 300.000MG QD
     Route: 048
     Dates: start: 20240116, end: 20240116
  23. NETUPITANT\PALONOSETRON [Concomitant]
     Active Substance: NETUPITANT\PALONOSETRON
     Dosage: 300.000MG QD
     Route: 048
     Dates: start: 20240206, end: 20240206
  24. ONDANSETRON [Concomitant]
     Active Substance: ONDANSETRON
     Indication: Prophylaxis
     Dosage: AS NEEDED
     Route: 034
     Dates: start: 20240206, end: 20240228
  25. PANTOPRAZOLE [Concomitant]
     Active Substance: PANTOPRAZOLE
     Indication: Prophylaxis
     Dosage: 20.000MG
     Route: 048
     Dates: start: 20240101

REACTIONS (2)
  - Autoimmune myositis [Recovered/Resolved]
  - Insomnia [Recovered/Resolved]

NARRATIVE: CASE EVENT DATE: 20240227
